FAERS Safety Report 7620761-8 (Version None)
Quarter: 2011Q3

REPORT INFORMATION
  Report Type: 
  Country: None (occurrence: None)
  Receive Date: 20110719
  Receipt Date: 20110131
  Transmission Date: 20111222
  Serious: Yes (Other)
  Sender: FDA-Public Use
  Company Number: PHHY2011GB61234

PATIENT
  Age: 21 Year
  Sex: Female

DRUGS (8)
  1. COLISTIN SULFATE [Concomitant]
     Indication: RESPIRATORY TRACT INFECTION
     Route: 042
  2. TACROLIMUS [Suspect]
     Indication: IMMUNOSUPPRESSION
     Dosage: UNK
  3. TOBRAMYCIN [Concomitant]
     Indication: RESPIRATORY TRACT INFECTION
     Route: 042
  4. CREON [Concomitant]
     Indication: RESPIRATORY TRACT INFECTION
     Dosage: UNK
  5. COTRIM [Suspect]
     Indication: RESPIRATORY TRACT INFECTION
     Dosage: UNK
  6. MEROPENEM [Concomitant]
     Indication: RESPIRATORY TRACT INFECTION
     Route: 042
  7. RANITIDINE [Concomitant]
  8. VITAMINS THERAPY [Concomitant]
     Indication: RESPIRATORY TRACT INFECTION
     Dosage: UNK

REACTIONS (7)
  - MACULAR OEDEMA [None]
  - RETINAL ARTERY OCCLUSION [None]
  - OCULAR VASCULITIS [None]
  - VISION BLURRED [None]
  - VISUAL ACUITY REDUCED [None]
  - DIABETIC RETINOPATHY [None]
  - VENOUS OCCLUSION [None]
